FAERS Safety Report 19438934 (Version 1)
Quarter: 2021Q2

REPORT INFORMATION
  Report Type: Spontaneous
  Country: US (occurrence: US)
  Receive Date: 20210618
  Receipt Date: 20210618
  Transmission Date: 20210717
  Serious: Yes (Life-Threatening, Hospitalization)
  Sender: FDA-Public Use
  Company Number: US-AMNEAL PHARMACEUTICALS-2021-AMRX-02281

PATIENT
  Age: 45 Year
  Sex: Female

DRUGS (5)
  1. PREDNISONE. [Concomitant]
     Active Substance: PREDNISONE
     Dosage: PREDNISONE DOSE TAPER
     Route: 065
     Dates: start: 2019, end: 2019
  2. AZATHIOPRINE. [Suspect]
     Active Substance: AZATHIOPRINE
     Indication: AUTOIMMUNE HEPATITIS
     Dosage: 1.2 MG/KG DAILY
     Route: 065
     Dates: start: 201904, end: 201907
  3. PREDNISONE. [Concomitant]
     Active Substance: PREDNISONE
     Dosage: PREDNISONE DOSE TAPER / GRADUALLY WEANED OFF
     Route: 065
     Dates: start: 2019
  4. PREDNISONE. [Concomitant]
     Active Substance: PREDNISONE
     Dosage: INCREASED DOSE
     Route: 065
     Dates: start: 2019, end: 2019
  5. PREDNISONE. [Concomitant]
     Active Substance: PREDNISONE
     Indication: AUTOIMMUNE HEPATITIS
     Dosage: UNK
     Route: 065
     Dates: start: 201904, end: 2019

REACTIONS (1)
  - Polyarteritis nodosa [Recovered/Resolved with Sequelae]

NARRATIVE: CASE EVENT DATE: 201907
